FAERS Safety Report 11891550 (Version 1)
Quarter: 2016Q1

REPORT INFORMATION
  Report Type: Spontaneous
  Country: US (occurrence: None)
  Receive Date: 20160105
  Receipt Date: 20160105
  Transmission Date: 20160526
  Serious: Yes (Disabling)
  Sender: FDA-Public Use
  Company Number: None

PATIENT
  Age: 37 Year
  Sex: Female
  Weight: 81.65 kg

DRUGS (5)
  1. DULOXETINE. [Suspect]
     Active Substance: DULOXETINE
     Indication: PAIN
     Dosage: TAKEN BY MOUTH
     Dates: start: 20151231, end: 20160102
  2. DIAZEPAM. [Concomitant]
     Active Substance: DIAZEPAM
  3. MORPHINE [Concomitant]
     Active Substance: MORPHINE
  4. GABAPENTIN. [Concomitant]
     Active Substance: GABAPENTIN
  5. OXYCODONE [Concomitant]
     Active Substance: OXYCODONE

REACTIONS (11)
  - Dyspepsia [None]
  - Diarrhoea [None]
  - Dyspnoea [None]
  - Blood pressure increased [None]
  - Ulcer [None]
  - Feeling abnormal [None]
  - Loss of consciousness [None]
  - Abdominal pain upper [None]
  - Chest pain [None]
  - Cough [None]
  - Breath sounds abnormal [None]

NARRATIVE: CASE EVENT DATE: 20160103
